FAERS Safety Report 6519301-6 (Version None)
Quarter: 2009Q4

REPORT INFORMATION
  Report Type: 
  Country: None (occurrence: None)
  Receive Date: 20091228
  Receipt Date: 20091223
  Transmission Date: 20100525
  Serious: Yes (Other)
  Sender: FDA-Public Use
  Company Number: US-WYE-H08414309

PATIENT
  Sex: Female
  Weight: 49.94 kg

DRUGS (3)
  1. PREMARIN [Suspect]
  2. ESTRATEST H.S. [Suspect]
  3. PROVERA [Suspect]

REACTIONS (1)
  - BREAST CANCER METASTATIC [None]
